FAERS Safety Report 5530511-7 (Version None)
Quarter: 2007Q4

REPORT INFORMATION
  Report Type: 
  Country: None (occurrence: None)
  Receive Date: 20071119
  Receipt Date: 20071008
  Transmission Date: 20080405
  Serious: No
  Sender: FDA-Public Use
  Company Number: TPA2007A02065

PATIENT
  Age: 80 Year
  Sex: Male
  Weight: 90.2658 kg

DRUGS (5)
  1. ROZEREM [Suspect]
     Indication: INSOMNIA
     Dosage: 8 MG, QHS, PER ORAL
     Route: 048
     Dates: start: 20070408
  2. DIOVAN [Concomitant]
  3. DOXAZOSIN MESYLATE [Concomitant]
  4. LORAZEPAM [Concomitant]
  5. MECLIZINE [Concomitant]

REACTIONS (1)
  - MIDDLE INSOMNIA [None]
